FAERS Safety Report 18195550 (Version 10)
Quarter: 2020Q4

REPORT INFORMATION
  Report Type: Report from Study
  Country: US (occurrence: US)
  Receive Date: 20200825
  Receipt Date: 20201109
  Transmission Date: 20210113
  Serious: Yes (Other)
  Sender: FDA-Public Use
  Company Number: NVSC2020US231645

PATIENT
  Sex: Female
  Weight: 66.21 kg

DRUGS (4)
  1. TREPROSTINIL. [Suspect]
     Active Substance: TREPROSTINIL
     Dosage: UNK (30 NG/KG/MIN, CONTINUOUS)
     Route: 042
     Dates: start: 20200817
  2. TREPROSTINIL. [Suspect]
     Active Substance: TREPROSTINIL
     Dosage: UNK (26 NG/KG/MIN, CONTINUOUS)
     Route: 042
     Dates: start: 20200817
  3. TREPROSTINIL. [Suspect]
     Active Substance: TREPROSTINIL
     Indication: PULMONARY ARTERIAL HYPERTENSION
     Dosage: UNK (20 NG/KG/MIN, CONTINUOUS)
     Route: 042
     Dates: start: 20200817
  4. OPSUMIT [Concomitant]
     Active Substance: MACITENTAN
     Indication: PRODUCT USED FOR UNKNOWN INDICATION
     Dosage: UNK
     Route: 065

REACTIONS (24)
  - Pain [Unknown]
  - Arthralgia [Unknown]
  - Nasal congestion [Unknown]
  - Systemic lupus erythematosus [Unknown]
  - Decreased appetite [Unknown]
  - Catheter site rash [Unknown]
  - Vomiting [Unknown]
  - Dyspnoea exertional [Not Recovered/Not Resolved]
  - Headache [Unknown]
  - Injection site pain [Unknown]
  - Fatigue [Unknown]
  - Rash [Unknown]
  - Pain in extremity [Unknown]
  - Peripheral swelling [Unknown]
  - Catheter site pruritus [Unknown]
  - Catheter site erythema [Unknown]
  - Flushing [Unknown]
  - Abdominal discomfort [Unknown]
  - Device occlusion [Unknown]
  - Pruritus [Unknown]
  - Diarrhoea [Unknown]
  - Scratch [Unknown]
  - Nausea [Unknown]
  - Catheter site haemorrhage [Unknown]
